FAERS Safety Report 7971543-9 (Version None)
Quarter: 2011Q4

REPORT INFORMATION
  Report Type: 
  Country: None (occurrence: None)
  Receive Date: 20111212
  Receipt Date: 20111206
  Transmission Date: 20120403
  Serious: Yes (Other)
  Sender: FDA-Public Use
  Company Number: US-TEVA-312331USA

PATIENT
  Sex: Male
  Weight: 81.72 kg

DRUGS (5)
  1. OLANZAPINE [Suspect]
  2. AMPHETAMINE AND DEXTROAMPHETAMINE SALTS [Suspect]
  3. VENLAFAXINE [Suspect]
  4. BUPROPION HCL [Suspect]
  5. ZOLPIDEM TARTRATE [Suspect]

REACTIONS (2)
  - DEPRESSION SUICIDAL [None]
  - STRESS [None]
